FAERS Safety Report 9381310 (Version 3)
Quarter: 2014Q2

REPORT INFORMATION
  Report Type: Spontaneous
  Country: US (occurrence: US)
  Receive Date: 20130703
  Receipt Date: 20140610
  Transmission Date: 20141212
  Serious: Yes (Hospitalization)
  Sender: FDA-Public Use
  Company Number: US-BAYER-2013-081307

PATIENT
  Age: 19 Year
  Sex: Female

DRUGS (5)
  1. YAZ [Suspect]
     Dosage: UNK
     Dates: start: 200603
  2. YASMIN [Suspect]
     Dosage: UNK
     Dates: start: 200603
  3. OCELLA [Suspect]
     Dosage: UNK
     Dates: start: 200603
  4. GIANVI [Suspect]
     Dosage: UNK
     Dates: start: 200603
  5. LISINOPRIL HYDROCHLORTHIAZID [Concomitant]
     Dosage: 10/12.5MG- ONE T PO D

REACTIONS (8)
  - Pulmonary embolism [None]
  - Injury [None]
  - Pain [None]
  - General physical health deterioration [None]
  - Emotional distress [None]
  - Pain [None]
  - Anxiety [None]
  - Anhedonia [None]
